FAERS Safety Report 5579355-0 (Version None)
Quarter: 2007Q4

REPORT INFORMATION
  Report Type: 
  Country: None (occurrence: None)
  Receive Date: 20071130
  Receipt Date: 20070625
  Transmission Date: 20080405
  Serious: No
  Sender: FDA-Public Use
  Company Number: US200707000239

PATIENT
  Age: 56 Year
  Sex: Female
  Weight: 83.9 kg

DRUGS (4)
  1. BYETTA [Suspect]
     Indication: TYPE 2 DIABETES MELLITUS
     Dosage: 5 UG, 2/D,10 UG, 2/D SUBCUTANEOUS
     Route: 058
     Dates: start: 20070505, end: 20070604
  2. BYETTA [Suspect]
     Indication: TYPE 2 DIABETES MELLITUS
     Dosage: 5 UG, 2/D,10 UG, 2/D SUBCUTANEOUS
     Route: 058
     Dates: start: 20070605
  3. HUMALOG [Concomitant]
  4. HUMULIN I                      (INSULIN HUMAN INJECTION, ISOPHANE) [Concomitant]

REACTIONS (4)
  - ABDOMINAL DISTENSION [None]
  - BLOOD GLUCOSE INCREASED [None]
  - DECREASED APPETITE [None]
  - WEIGHT DECREASED [None]
